FAERS Safety Report 25361269 (Version 1)
Quarter: 2025Q2

REPORT INFORMATION
  Report Type: Report from Study
  Country: US (occurrence: US)
  Receive Date: 20250527
  Receipt Date: 20250527
  Transmission Date: 20250716
  Serious: Yes (Other)
  Sender: GILEAD
  Company Number: US-GILEAD-2025-0714306

PATIENT
  Age: 38 Year
  Sex: Female

DRUGS (26)
  1. AMBRISENTAN [Suspect]
     Active Substance: AMBRISENTAN
     Indication: Pulmonary arterial hypertension
     Route: 065
  2. TREPROSTINIL SODIUM [Suspect]
     Active Substance: TREPROSTINIL SODIUM
     Indication: Pulmonary arterial hypertension
     Route: 058
     Dates: start: 2024
  3. TREPROSTINIL SODIUM [Suspect]
     Active Substance: TREPROSTINIL SODIUM
     Route: 058
     Dates: start: 2024
  4. TREPROSTINIL SODIUM [Suspect]
     Active Substance: TREPROSTINIL SODIUM
     Route: 058
  5. TREPROSTINIL SODIUM [Suspect]
     Active Substance: TREPROSTINIL SODIUM
     Route: 058
     Dates: start: 2024
  6. REMODULIN [Suspect]
     Active Substance: TREPROSTINIL
     Indication: Pulmonary arterial hypertension
     Route: 058
     Dates: start: 202410
  7. REMODULIN [Suspect]
     Active Substance: TREPROSTINIL
     Route: 058
  8. REMODULIN [Suspect]
     Active Substance: TREPROSTINIL
     Route: 058
  9. REMODULIN [Suspect]
     Active Substance: TREPROSTINIL
     Route: 058
  10. REMODULIN [Suspect]
     Active Substance: TREPROSTINIL
     Route: 058
  11. REMODULIN [Suspect]
     Active Substance: TREPROSTINIL
     Route: 058
  12. REMODULIN [Suspect]
     Active Substance: TREPROSTINIL
     Route: 058
  13. REMODULIN [Suspect]
     Active Substance: TREPROSTINIL
     Route: 058
     Dates: start: 20250104
  14. REMODULIN [Suspect]
     Active Substance: TREPROSTINIL
     Route: 058
  15. REMODULIN [Suspect]
     Active Substance: TREPROSTINIL
     Route: 058
  16. IMODIUM [Suspect]
     Active Substance: LOPERAMIDE HYDROCHLORIDE
     Indication: Diarrhoea
     Route: 065
  17. TADALAFIL [Concomitant]
     Active Substance: TADALAFIL
  18. MYCOPHENOLATE MOFETIL [Concomitant]
     Active Substance: MYCOPHENOLATE MOFETIL
  19. TRAMADOL HCL [Concomitant]
     Active Substance: TRAMADOL HYDROCHLORIDE
  20. PROCHLORPERAZINE [Concomitant]
     Active Substance: PROCHLORPERAZINE
  21. TOPIRAMATE [Concomitant]
     Active Substance: TOPIRAMATE
  22. LOPERAMIDE [Concomitant]
     Active Substance: LOPERAMIDE
  23. NEOSPORIN OPHTHALMIC SOLUTION [Concomitant]
     Active Substance: GRAMICIDIN\NEOMYCIN SULFATE\POLYMYXIN B SULFATE
  24. TYLENOL [Concomitant]
     Active Substance: ACETAMINOPHEN
  25. LOMOTIL [Concomitant]
     Active Substance: ATROPINE SULFATE\DIPHENOXYLATE HYDROCHLORIDE
     Dates: start: 20250419
  26. OPSUMIT [Concomitant]
     Active Substance: MACITENTAN

REACTIONS (21)
  - Dyspnoea at rest [Unknown]
  - Diarrhoea [Recovering/Resolving]
  - Headache [Recovering/Resolving]
  - Chest discomfort [Unknown]
  - Hypotension [Recovered/Resolved]
  - Dyspnoea exertional [Unknown]
  - Vomiting [Recovering/Resolving]
  - Fatigue [Not Recovered/Not Resolved]
  - Myalgia [Unknown]
  - Migraine [Unknown]
  - Muscle twitching [Unknown]
  - Pain in extremity [Unknown]
  - Infusion site pain [Unknown]
  - Infusion site paraesthesia [Unknown]
  - Infusion site reaction [Unknown]
  - Infusion site haemorrhage [Not Recovered/Not Resolved]
  - Restless legs syndrome [Unknown]
  - Groin pain [Unknown]
  - General physical health deterioration [Unknown]
  - Device infusion issue [Unknown]
  - Therapy non-responder [Unknown]

NARRATIVE: CASE EVENT DATE: 20240101
